FAERS Safety Report 6669170-9 (Version None)
Quarter: 2010Q2

REPORT INFORMATION
  Report Type: 
  Country: None (occurrence: None)
  Receive Date: 20100402
  Receipt Date: 20100325
  Transmission Date: 20101027
  Serious: Yes (Hospitalization)
  Sender: FDA-Public Use
  Company Number: 230438J10USA

PATIENT
  Age: 51 Year
  Sex: Female
  Weight: 103 kg

DRUGS (5)
  1. REBIF [Suspect]
     Indication: OFF LABEL USE
     Dosage: 44 MCG, SUBCUTANEOUS; 44 MCG, 2 IN 1 WEEKS, SUBCUTANEOUS; 22 MCG, 2 IN 1 WEEKS, SUBCUTANEOUS
     Route: 058
     Dates: start: 20090518, end: 20090901
  2. REBIF [Suspect]
     Indication: OFF LABEL USE
     Dosage: 44 MCG, SUBCUTANEOUS; 44 MCG, 2 IN 1 WEEKS, SUBCUTANEOUS; 22 MCG, 2 IN 1 WEEKS, SUBCUTANEOUS
     Route: 058
     Dates: start: 20090901, end: 20091201
  3. LISINOPRIL [Concomitant]
  4. OTHER UNSPECIFIED MEDICATIONS (ALL OTHER THERAPEUTIC PRODUCTS) [Concomitant]
  5. ASPIRIN [Concomitant]

REACTIONS (2)
  - BREAST CANCER FEMALE [None]
  - OFF LABEL USE [None]
